FAERS Safety Report 12047225 (Version 2)
Quarter: 2016Q2

REPORT INFORMATION
  Report Type: Spontaneous
  Country: US (occurrence: US)
  Receive Date: 20160208
  Receipt Date: 20160404
  Transmission Date: 20160815
  Serious: Yes (Hospitalization)
  Sender: FDA-Public Use
  Company Number: US-BAYER-2016-023713

PATIENT
  Age: 22 Year
  Sex: Female

DRUGS (2)
  1. MIRENA [Suspect]
     Active Substance: LEVONORGESTREL
     Indication: CONTRACEPTION
     Dosage: 20 MCG/24HR, CONT
     Route: 015
     Dates: start: 20101005, end: 20130914
  2. PERCOCET [Concomitant]
     Active Substance: ACETAMINOPHEN\OXYCODONE HYDROCHLORIDE

REACTIONS (9)
  - Device issue [None]
  - Uterine perforation [None]
  - Pelvic adhesions [None]
  - Abasia [None]
  - Abdominal pain lower [None]
  - Dyspareunia [None]
  - Procedural pain [None]
  - Internal injury [None]
  - Scar [None]

NARRATIVE: CASE EVENT DATE: 20101028
